FAERS Safety Report 24048110 (Version 1)
Quarter: 2024Q3

REPORT INFORMATION
  Report Type: Spontaneous
  Country: JP (occurrence: JP)
  Receive Date: 20240703
  Receipt Date: 20240703
  Transmission Date: 20241017
  Serious: Yes (Death, Other)
  Sender: COLLEGIUM PHARMACEUTICAL
  Company Number: JP-shionogi-202404517_SYP_P_1

PATIENT
  Age: 60 Decade
  Sex: Male

DRUGS (7)
  1. SYMPROIC [Suspect]
     Active Substance: NALDEMEDINE
     Indication: Constipation
     Dosage: 0.2 MILLIGRAM, QD
     Route: 048
  2. OXINORM [Concomitant]
     Indication: Gastric cancer
     Dosage: 2.5 MILLIGRAM, UNKNOWN
     Route: 048
     Dates: start: 202302, end: 2023
  3. OXINORM [Concomitant]
     Dosage: 2.5 MILLIGRAM, PRN (3 TO 4 TIMES/DAY,  7.5-10 MG/DAY TOTAL)
     Route: 048
     Dates: start: 202302, end: 2023
  4. FENTANYL [Concomitant]
     Active Substance: FENTANYL\FENTANYL CITRATE
     Indication: Gastric cancer
     Dosage: 0.5 MG, QD
     Route: 062
     Dates: start: 202302, end: 2023
  5. FENTANYL [Concomitant]
     Active Substance: FENTANYL\FENTANYL CITRATE
     Dosage: 1 MG, QD
     Route: 062
     Dates: start: 202302, end: 2023
  6. MAGNESIUM OXIDE [Concomitant]
     Active Substance: MAGNESIUM OXIDE
     Indication: Product used for unknown indication
     Dosage: 330 MILLIGRAM, BID 1 (PER 12 HOUR)
     Route: 065
  7. LACTULOSE [Concomitant]
     Active Substance: LACTULOSE
     Indication: Product used for unknown indication
     Dosage: 1 DOSAGE FORM, QD
     Route: 065

REACTIONS (2)
  - Pneumonia aspiration [Not Recovered/Not Resolved]
  - Death [Fatal]

NARRATIVE: CASE EVENT DATE: 20230101
